FAERS Safety Report 25138976 (Version 1)
Quarter: 2025Q1

REPORT INFORMATION
  Report Type: Other
  Country: CA (occurrence: CA)
  Receive Date: 20250331
  Receipt Date: 20250331
  Transmission Date: 20250408
  Serious: Yes (Hospitalization)
  Sender: INTERCEPT PHARMACEUTICALS
  Company Number: CA-INTERCEPT-PM2022000450

PATIENT
  Age: 58 Year
  Sex: Female

DRUGS (4)
  1. OCALIVA [Suspect]
     Active Substance: OBETICHOLIC ACID
     Indication: Primary biliary cholangitis
     Dosage: 5 MILLIGRAM, QD
     Route: 048
     Dates: start: 20220223
  2. URSODIOL [Concomitant]
     Active Substance: URSODIOL
  3. URSODIOL [Concomitant]
     Active Substance: URSODIOL
  4. URSODIOL [Concomitant]
     Active Substance: URSODIOL

REACTIONS (7)
  - Hospitalisation [Unknown]
  - Weight increased [Not Recovered/Not Resolved]
  - Abdominal distension [Unknown]
  - Constipation [Unknown]
  - Fatigue [Recovering/Resolving]
  - Product distribution issue [Unknown]
  - Therapy cessation [Unknown]

NARRATIVE: CASE EVENT DATE: 20220201
